FAERS Safety Report 19462748 (Version 7)
Quarter: 2021Q4

REPORT INFORMATION
  Report Type: Other
  Country: JP (occurrence: JP)
  Receive Date: 20210627
  Receipt Date: 20211221
  Transmission Date: 20220303
  Serious: Yes (Death, Hospitalization, Other)
  Sender: FDA-Public Use
  Company Number: JP-CHUGAI-2021003624AA

PATIENT
  Age: 84 Year

DRUGS (2)
  1. TECENTRIQ [Suspect]
     Active Substance: ATEZOLIZUMAB
     Indication: Hepatocellular carcinoma
     Route: 041
  2. AVASTIN [Suspect]
     Active Substance: BEVACIZUMAB
     Indication: Hepatocellular carcinoma
     Dosage: 15 MILLIGRAM/KILOGRAM, ONCE/3WEEKS
     Route: 041

REACTIONS (8)
  - Pneumocystis jirovecii pneumonia [Fatal]
  - Interstitial lung disease [Fatal]
  - Oesophagitis [Unknown]
  - Duodenal ulcer [Unknown]
  - Bacteraemia [Unknown]
  - Haemophagocytic lymphohistiocytosis [Unknown]
  - Pancreatitis acute [Unknown]
  - Rash [Unknown]

NARRATIVE: CASE EVENT DATE: 20210618
